FAERS Safety Report 18177651 (Version 1)
Quarter: 2020Q3

REPORT INFORMATION
  Report Type: Spontaneous
  Country: US (occurrence: US)
  Receive Date: 20200820
  Receipt Date: 20200820
  Transmission Date: 20201103
  Serious: Yes (Other)
  Sender: FDA-Public Use
  Company Number: US-OMEROS CORPORATION-2020OME00005

PATIENT
  Age: 77 Year
  Sex: Female
  Weight: 89.34 kg

DRUGS (20)
  1. OFLOXACIN. [Concomitant]
     Active Substance: OFLOXACIN
     Dosage: X 3 PRIOR TO PROCEDURE
     Dates: start: 2020, end: 2020
  2. ASPIRIN. [Concomitant]
     Active Substance: ASPIRIN
  3. OMIDRIA [Suspect]
     Active Substance: KETOROLAC\PHENYLEPHRINE
     Indication: CATARACT OPERATION
     Dosage: 4 ML PER 500 CC BSS SOLUTION
     Route: 047
     Dates: start: 20200706, end: 20200706
  4. BETADINE [Concomitant]
     Active Substance: POVIDONE-IODINE
     Dosage: UNK
     Dates: start: 20200706, end: 20200706
  5. PROPARACAINE [Concomitant]
     Active Substance: PROPARACAINE
     Dosage: X 3 PRIOR TO PROCEDURE
     Dates: start: 2020, end: 2020
  6. PRED FORTE [Concomitant]
     Active Substance: PREDNISOLONE ACETATE
     Dosage: UNK
     Dates: start: 20200706, end: 20200706
  7. TROPICAMIDE. [Concomitant]
     Active Substance: TROPICAMIDE
     Dosage: X 3 PRIOR TO PROCEDURE
     Dates: start: 2020, end: 2020
  8. OFLOXACIN. [Concomitant]
     Active Substance: OFLOXACIN
     Dosage: UNK
     Dates: start: 20200706, end: 20200706
  9. LIDOCAINE 1% PF WITH EPINEPHRINE 1:1000 PF [Concomitant]
     Dosage: UNK
     Dates: start: 20200706, end: 20200706
  10. AVELOX [Concomitant]
     Active Substance: MOXIFLOXACIN HYDROCHLORIDE
     Dosage: 0.1 ML
     Dates: start: 20200706, end: 20200706
  11. VERSED [Concomitant]
     Active Substance: MIDAZOLAM HYDROCHLORIDE
     Dosage: 2 MG PRIOR TO PROCEDURE
     Route: 042
     Dates: start: 2020, end: 2020
  12. CRESTOR [Concomitant]
     Active Substance: ROSUVASTATIN CALCIUM
  13. PROPARACAINE [Concomitant]
     Active Substance: PROPARACAINE
     Dosage: UNK
     Dates: start: 20200706, end: 20200706
  14. LESS DROPS [Concomitant]
  15. BSS SOLUTION (ALCON) [Concomitant]
     Dosage: 4 ML OMIDRIA WITH 500 CC BSS SOLUTION
     Dates: start: 20200706, end: 20200706
  16. VISCOAT [Concomitant]
     Dosage: UNK
     Dates: start: 20200706, end: 20200706
  17. ANIKAVISC [Concomitant]
     Dosage: UNK
     Dates: start: 20200706, end: 20200706
  18. PHENYLEPHRINE [Concomitant]
     Active Substance: PHENYLEPHRINE HYDROCHLORIDE
     Dosage: X 3 PRIOR TO PROCEDURE
     Dates: start: 2020, end: 2020
  19. OMIDRIA [Suspect]
     Active Substance: KETOROLAC\PHENYLEPHRINE
     Indication: INTRAOCULAR LENS IMPLANT
  20. ACIDOPHILUS [Concomitant]
     Active Substance: LACTOBACILLUS ACIDOPHILUS

REACTIONS (1)
  - Vitritis [Recovered/Resolved]

NARRATIVE: CASE EVENT DATE: 20200721
